FAERS Safety Report 11788671 (Version 1)
Quarter: 2015Q4

REPORT INFORMATION
  Report Type: Spontaneous
  Country: US (occurrence: None)
  Receive Date: 20151125
  Receipt Date: 20151125
  Transmission Date: 20160305
  Serious: Yes (Hospitalization, Other)
  Sender: FDA-Public Use
  Company Number: US-ALSI-201500297

PATIENT
  Age: 58 Year
  Sex: Female

DRUGS (1)
  1. NITROUS OXIDE. [Suspect]
     Active Substance: NITROUS OXIDE
     Indication: GENERAL ANAESTHESIA
     Dosage: RESPIRATORY
     Route: 055
     Dates: start: 19820902, end: 19820902

REACTIONS (3)
  - Vitamin B12 decreased [None]
  - Subacute combined cord degeneration [None]
  - Mean cell volume decreased [None]

NARRATIVE: CASE EVENT DATE: 198210
